FAERS Safety Report 6280162-4 (Version None)
Quarter: 2009Q3

REPORT INFORMATION
  Report Type: 
  Country: None (occurrence: None)
  Receive Date: 20090723
  Receipt Date: 20090716
  Transmission Date: 20100115
  Serious: Yes (Other)
  Sender: FDA-Public Use
  Company Number: DE-ABBOTT-09P-062-0586046-00

PATIENT
  Sex: Male
  Weight: 69 kg

DRUGS (3)
  1. HUMIRA [Suspect]
     Indication: CROHN'S DISEASE
     Dates: start: 20070701
  2. MTX [Concomitant]
     Indication: CROHN'S DISEASE
     Route: 058
     Dates: start: 20040101
  3. METHYLPREDNISOLONE [Concomitant]
     Indication: CROHN'S DISEASE
     Dosage: 16-64 MG IF NECESSARY
     Route: 048
     Dates: start: 20030101

REACTIONS (1)
  - EMPHYSEMA [None]
